FAERS Safety Report 10608901 (Version 1)
Quarter: 2014Q4

REPORT INFORMATION
  Report Type: Spontaneous
  Country: US (occurrence: US)
  Receive Date: 20141125
  Receipt Date: 20141125
  Transmission Date: 20150529
  Serious: Yes (Other)
  Sender: FDA-Public Use
  Company Number: US-CUBIST PHARMACEUTICALS, INC.-2014CBST001550

PATIENT

DRUGS (7)
  1. CUBICIN [Suspect]
     Active Substance: DAPTOMYCIN
     Indication: PROPHYLAXIS
     Dosage: UNK UNK, UNK
     Route: 065
  2. CUBICIN [Suspect]
     Active Substance: DAPTOMYCIN
     Indication: OFF LABEL USE
  3. GANCICLOVIR. [Concomitant]
     Active Substance: GANCICLOVIR
     Indication: CYTOMEGALOVIRUS INFECTION
     Dosage: UNK UNK, UNK
     Route: 042
  4. LEVOFLOXACIN. [Concomitant]
     Active Substance: LEVOFLOXACIN
     Indication: CYTOMEGALOVIRUS INFECTION
     Dosage: UNK UNK, UNK
     Route: 065
  5. AMPICILLIN W/SULBACTAM             /00892601/ [Concomitant]
     Indication: CYTOMEGALOVIRUS INFECTION
     Dosage: UNK UNK, UNK
     Route: 065
  6. VANCOMYCIN [Concomitant]
     Active Substance: VANCOMYCIN
     Indication: CYTOMEGALOVIRUS INFECTION
     Dosage: UNK UNK, UNK
     Route: 065
  7. METRONIDAZOLE. [Concomitant]
     Active Substance: METRONIDAZOLE
     Indication: CYTOMEGALOVIRUS INFECTION
     Dosage: UNK UNK, UNK
     Route: 065

REACTIONS (2)
  - Off label use [Unknown]
  - Graft versus host disease [Recovered/Resolved]
